FAERS Safety Report 18074359 (Version 1)
Quarter: 2020Q3

REPORT INFORMATION
  Report Type: Report from Study
  Country: CA (occurrence: CA)
  Receive Date: 20200727
  Receipt Date: 20200727
  Transmission Date: 20201103
  Serious: Yes (Other)
  Sender: FDA-Public Use
  Company Number: NVSC2020CA209456

PATIENT
  Age: 51 Year
  Sex: Male

DRUGS (1)
  1. EZETIMIBE. [Suspect]
     Active Substance: EZETIMIBE
     Indication: LOW DENSITY LIPOPROTEIN ABNORMAL
     Dosage: UNK
     Route: 065

REACTIONS (5)
  - Stress [Unknown]
  - Hypertension [Unknown]
  - Hypothyroidism [Unknown]
  - Drug ineffective [Unknown]
  - Low density lipoprotein increased [Unknown]
